FAERS Safety Report 9411715 (Version 1)
Quarter: 2013Q3

REPORT INFORMATION
  Report Type: Spontaneous
  Country: US (occurrence: US)
  Receive Date: 20130722
  Receipt Date: 20130722
  Transmission Date: 20140515
  Serious: Yes (Death)
  Sender: FDA-Public Use
  Company Number: US-COVIDIEN/TYCO HEALTHCARE/MALLINCKRODT-T201204206

PATIENT
  Age: 35 Year
  Sex: Male
  Weight: 74.83 kg

DRUGS (10)
  1. MORPHINE EXTENDED-RELEASE [Suspect]
     Indication: BACK PAIN
     Dosage: 30 MG, BID
     Route: 048
  2. MORPHINE EXTENDED-RELEASE [Suspect]
     Indication: MENINGITIS
  3. BENTYL [Suspect]
     Indication: MUSCLE SPASMS
     Dosage: 10 MG PRN
     Route: 048
     Dates: start: 201210
  4. BENTYL [Suspect]
     Indication: IRRITABLE BOWEL SYNDROME
  5. OXYCODONE / ACETAMINOPHEN [Concomitant]
     Indication: BREAKTHROUGH PAIN
     Dosage: 10/325 MG, UP TO 2 PER DAY
  6. GABAPENTIN [Concomitant]
     Indication: NEURALGIA
     Dosage: 800 MG TID
  7. BACLOFEN [Concomitant]
     Dosage: UNK
  8. ZANAFLEX [Concomitant]
     Dosage: UNK
  9. CLONAZEPAM [Concomitant]
     Dosage: UNK
  10. PRILOSEC                           /00661201/ [Concomitant]
     Dosage: UNK

REACTIONS (9)
  - Abdominal pain upper [Unknown]
  - Abdominal rigidity [Unknown]
  - Gastrointestinal sounds abnormal [Unknown]
  - Energy increased [Unknown]
  - Somnolence [Unknown]
  - Drug effect increased [Recovered/Resolved]
  - Drug ineffective [Not Recovered/Not Resolved]
  - Drug effect delayed [Unknown]
  - Lethargy [Not Recovered/Not Resolved]
